FAERS Safety Report 4511280-6 (Version None)
Quarter: 2004Q4

REPORT INFORMATION
  Report Type: 
  Country: None (occurrence: None)
  Receive Date: 20041123
  Receipt Date: 20041123
  Transmission Date: 20050328
  Serious: Yes (Disabling, Other)
  Sender: FDA-Public Use
  Company Number: None

PATIENT
  Age: 41 Year
  Sex: Male
  Weight: 97.5234 kg

DRUGS (2)
  1. CORICIDIN D TABLETS [Suspect]
     Indication: HEADACHE
     Dosage: 1 TAB ORAL
     Route: 048
     Dates: start: 19960901, end: 19960901
  2. DIMETAPP [Concomitant]

REACTIONS (5)
  - AMNESIA [None]
  - CEREBROVASCULAR ACCIDENT [None]
  - HAEMORRHAGIC STROKE [None]
  - HEMIPLEGIA [None]
  - MEMORY IMPAIRMENT [None]
